FAERS Safety Report 20698914 (Version 2)
Quarter: 2022Q2

REPORT INFORMATION
  Report Type: Spontaneous
  Country: US (occurrence: US)
  Receive Date: 20220412
  Receipt Date: 20220504
  Transmission Date: 20220721
  Serious: Yes (Death, Other)
  Sender: FDA-Public Use
  Company Number: US-KOREA IPSEN Pharma-2022-10037

PATIENT
  Age: 61 Year
  Sex: Male
  Weight: 74.84 kg

DRUGS (8)
  1. SOMATULINE DEPOT [Suspect]
     Active Substance: LANREOTIDE ACETATE
     Indication: Carcinoid tumour
     Dosage: 120MG EVERY 4 WEEKS
     Route: 058
     Dates: start: 20200706
  2. SOMATULINE DEPOT [Suspect]
     Active Substance: LANREOTIDE ACETATE
     Indication: Gastroenteropancreatic neuroendocrine tumour disease
  3. ZOMETA [Concomitant]
     Active Substance: ZOLEDRONIC ACID
     Dates: start: 20210714
  4. ZOMETA [Concomitant]
     Active Substance: ZOLEDRONIC ACID
     Dates: start: 20200117, end: 20210316
  5. SANDOSTATIN [Concomitant]
     Active Substance: OCTREOTIDE ACETATE
     Dates: start: 20180529, end: 20200605
  6. LASIX [Concomitant]
     Active Substance: FUROSEMIDE
  7. BUMEX [Concomitant]
     Active Substance: BUMETANIDE
  8. SPIRONOLACTONE [Concomitant]
     Active Substance: SPIRONOLACTONE

REACTIONS (21)
  - Neoplasm malignant [Fatal]
  - Disease progression [Unknown]
  - Leukopenia [Unknown]
  - Ascites [Unknown]
  - Peripheral swelling [Recovering/Resolving]
  - Swelling [Unknown]
  - Scrotal swelling [Recovering/Resolving]
  - Oedema peripheral [Recovering/Resolving]
  - Weight increased [Unknown]
  - Pleural effusion [Unknown]
  - Weight decreased [Unknown]
  - Skin tightness [Recovering/Resolving]
  - Gait disturbance [Unknown]
  - Taste disorder [Not Recovered/Not Resolved]
  - Dyspnoea [Not Recovered/Not Resolved]
  - Contusion [Unknown]
  - Lipoma [Unknown]
  - Gastroenteritis [Recovered/Resolved]
  - Gastrointestinal disorder [Recovered/Resolved]
  - Polyuria [Unknown]
  - Blood creatinine abnormal [Unknown]

NARRATIVE: CASE EVENT DATE: 20210301
